FAERS Safety Report 24116037 (Version 1)
Quarter: 2024Q3

REPORT INFORMATION
  Report Type: Spontaneous
  Country: IT (occurrence: IT)
  Receive Date: 20240722
  Receipt Date: 20240722
  Transmission Date: 20241017
  Serious: Yes (Hospitalization)
  Sender: CHEPLAPHARM
  Company Number: None

PATIENT
  Age: 80 Year
  Sex: Male

DRUGS (4)
  1. OLANZAPINE [Suspect]
     Active Substance: OLANZAPINE
     Indication: Hallucination
     Dosage: 5 MG
     Route: 048
     Dates: start: 20240702, end: 20240702
  2. OLANZAPINE [Suspect]
     Active Substance: OLANZAPINE
     Indication: Delirium
     Dosage: 5 MG
     Route: 048
     Dates: start: 20240702, end: 20240702
  3. LORAZEPAM [Concomitant]
     Active Substance: LORAZEPAM
     Dosage: 10 GTT
     Route: 048
  4. CITALOPRAM [Concomitant]
     Active Substance: CITALOPRAM\CITALOPRAM HYDROBROMIDE
     Dosage: 12 GTT
     Route: 048

REACTIONS (2)
  - Sedation [Recovered/Resolved]
  - Drug ineffective [Recovered/Resolved]

NARRATIVE: CASE EVENT DATE: 20240702
